FAERS Safety Report 7834444-2 (Version None)
Quarter: 2011Q4

REPORT INFORMATION
  Report Type: 
  Country: None (occurrence: None)
  Receive Date: 20111024
  Receipt Date: 20111014
  Transmission Date: 20120403
  Serious: Yes (Other)
  Sender: FDA-Public Use
  Company Number: US-ELI_LILLY_AND_COMPANY-US201110004282

PATIENT
  Sex: Female

DRUGS (2)
  1. LANTUS [Concomitant]
     Dosage: 100 MG, BID
  2. HUMALOG [Suspect]
     Indication: DIABETES MELLITUS
     Dosage: 30 U, TID

REACTIONS (5)
  - STAPHYLOCOCCAL INFECTION [None]
  - KNEE ARTHROPLASTY [None]
  - DEAFNESS [None]
  - DEVICE RELATED INFECTION [None]
  - INJECTION SITE HAEMORRHAGE [None]
